FAERS Safety Report 23409438 (Version 2)
Quarter: 2024Q2

REPORT INFORMATION
  Report Type: Spontaneous
  Country: CN (occurrence: CN)
  Receive Date: 20240117
  Receipt Date: 20240418
  Transmission Date: 20240716
  Serious: Yes (Other)
  Sender: FDA-Public Use
  Company Number: CN-SUN PHARMACEUTICAL INDUSTRIES LTD-2024R1-426845

PATIENT
  Age: 61 Year
  Sex: Male
  Weight: 63 kg

DRUGS (2)
  1. AMPHOTERICIN B [Suspect]
     Active Substance: AMPHOTERICIN B
     Indication: HIV infection
     Dosage: 50 MILLIGRAM/KILOGRAM, QD
     Route: 042
  2. ITRACONAZOLE [Suspect]
     Active Substance: ITRACONAZOLE
     Indication: HIV infection
     Dosage: 200 MILLIGRAM/KILOGRAM, QD
     Route: 048

REACTIONS (2)
  - Hepatic function abnormal [Unknown]
  - Renal impairment [Unknown]
